FAERS Safety Report 6084154-X (Version None)
Quarter: 2009Q1

REPORT INFORMATION
  Report Type: 
  Country: None (occurrence: None)
  Receive Date: 20090219
  Receipt Date: 20090212
  Transmission Date: 20090719
  Serious: Yes (Other)
  Sender: FDA-Public Use
  Company Number: FR-ABBOTT-08P-056-0483499-00

PATIENT
  Sex: Female
  Weight: 57 kg

DRUGS (2)
  1. HUMIRA [Suspect]
     Indication: ANKYLOSING SPONDYLITIS
     Route: 058
     Dates: start: 20081009, end: 20081009
  2. AMOXICILLIN + CLAVULANATE POTASSIUM [Suspect]
     Indication: BRONCHITIS
     Route: 048
     Dates: start: 20081015

REACTIONS (4)
  - INJECTION SITE DERMATITIS [None]
  - INJECTION SITE URTICARIA [None]
  - PRURITUS GENERALISED [None]
  - URTICARIA [None]
